FAERS Safety Report 5771359-8 (Version None)
Quarter: 2008Q2

REPORT INFORMATION
  Report Type: 
  Country: None (occurrence: None)
  Receive Date: 20080610
  Receipt Date: 20080527
  Transmission Date: 20081010
  Serious: Yes (Other)
  Sender: FDA-Public Use
  Company Number: 2008BI00577

PATIENT
  Age: 58 Year
  Sex: Male

DRUGS (13)
  1. TYSABRI [Suspect]
     Indication: MULTIPLE SCLEROSIS
     Dosage: 300 MG; QM; IV
     Route: 042
     Dates: start: 20070425, end: 20080222
  2. CLARITIN [Concomitant]
  3. TYLENOL [Concomitant]
  4. ARICEPT [Concomitant]
  5. IBUROFEN [Concomitant]
  6. AMBIEN [Concomitant]
  7. BUPROPION HYDROCHLORIDE [Concomitant]
  8. PROVIGIL [Concomitant]
  9. NAMENDA [Concomitant]
  10. BACLOFEN [Concomitant]
  11. VIAGRA [Concomitant]
  12. ASPIRIN [Concomitant]
  13. ZOCOR [Concomitant]

REACTIONS (26)
  - ABDOMINAL PAIN UPPER [None]
  - ALANINE AMINOTRANSFERASE INCREASED [None]
  - ANTINUCLEAR ANTIBODY POSITIVE [None]
  - ASPARTATE AMINOTRANSFERASE INCREASED [None]
  - AUTOIMMUNE DISORDER [None]
  - BILIRUBIN CONJUGATED INCREASED [None]
  - BLOOD ALBUMIN DECREASED [None]
  - BLOOD ALKALINE PHOSPHATASE INCREASED [None]
  - BLOOD BILIRUBIN INCREASED [None]
  - BLOOD CHLORIDE DECREASED [None]
  - BLOOD GLUCOSE INCREASED [None]
  - BLOOD SODIUM DECREASED [None]
  - CD4 LYMPHOCYTES INCREASED [None]
  - CHROMATURIA [None]
  - FAECES DISCOLOURED [None]
  - GLOBULINS INCREASED [None]
  - HAEMATOCRIT DECREASED [None]
  - HAEMOGLOBIN DECREASED [None]
  - HEPATIC STEATOSIS [None]
  - HIGH DENSITY LIPOPROTEIN DECREASED [None]
  - ILL-DEFINED DISORDER [None]
  - IMMUNOGLOBULINS INCREASED [None]
  - MEMORY IMPAIRMENT [None]
  - PROTEIN TOTAL INCREASED [None]
  - RED BLOOD CELL COUNT DECREASED [None]
  - RED BLOOD CELL SEDIMENTATION RATE INCREASED [None]
